FAERS Safety Report 11813313 (Version 1)
Quarter: 2015Q4

REPORT INFORMATION
  Report Type: Report from Study
  Country: NL (occurrence: NL)
  Receive Date: 20151209
  Receipt Date: 20151209
  Transmission Date: 20160305
  Serious: Yes (Other)
  Sender: FDA-Public Use
  Company Number: NL-AMGEN-NLDSL2015129145

PATIENT
  Age: 62 Year
  Sex: Female

DRUGS (16)
  1. DEXAMETHASON                       /00016001/ [Concomitant]
     Active Substance: DEXAMETHASONE
     Dosage: 4 MG, UNK
     Dates: start: 20150911, end: 20150913
  2. CHLORAZEPAM [Concomitant]
     Dosage: 10 MG, UNK
     Dates: start: 20150628
  3. TRIMETHOPRIM. [Concomitant]
     Active Substance: TRIMETHOPRIM
     Dosage: 300 MG, QD
     Dates: start: 20151017, end: 20151023
  4. FLUTICASON [Concomitant]
     Active Substance: FLUTICASONE\FLUTICASONE PROPIONATE
     Dosage: 0.05 MG/G, QD
     Dates: start: 20150928
  5. TRANXENE T-TAB [Concomitant]
     Active Substance: CLORAZEPATE DIPOTASSIUM
     Dosage: 20 MG, QD
     Dates: start: 20150925, end: 20151123
  6. XGEVA [Suspect]
     Active Substance: DENOSUMAB
     Indication: PRODUCT USED FOR UNKNOWN INDICATION
     Dosage: 120 MG, Q4WK
     Route: 058
     Dates: start: 20150612
  7. FEXOFENADINE HCL [Concomitant]
     Active Substance: FEXOFENADINE HYDROCHLORIDE
     Dosage: 180 MG, QD
     Dates: start: 20150928, end: 20151230
  8. CALCIUMCARBIMIDUM [Concomitant]
     Dosage: 500 MG, UNK
     Dates: start: 20150612, end: 20151219
  9. OXAZEPAM. [Concomitant]
     Active Substance: OXAZEPAM
     Dosage: 10 MG, QD
     Dates: start: 20151113, end: 20151122
  10. OXYCODON [Concomitant]
     Active Substance: OXYCODONE
     Dosage: 5 MG, QD
     Dates: start: 20150612
  11. HYDROCORTISONE BUTYRATE. [Concomitant]
     Active Substance: HYDROCORTISONE BUTYRATE
     Dosage: 1 MG/G, QD
     Dates: start: 20150907, end: 20150921
  12. MICONAZOL [Concomitant]
     Active Substance: MICONAZOLE NITRATE
     Dosage: 20 MG/G, UNK
     Dates: start: 20150828, end: 20151111
  13. FLUCONAZOL [Concomitant]
     Active Substance: FLUCONAZOLE
     Dosage: 150 MG, QD
     Dates: start: 20150925
  14. FENTANYL. [Concomitant]
     Active Substance: FENTANYL
     Dosage: 12 MUG (12MUG/UUR)
     Dates: start: 20150629, end: 20151121
  15. FOSFOMYCINE [Concomitant]
     Active Substance: FOSFOMYCIN
     Dosage: 3 G, QD
     Dates: start: 20151016
  16. MACROGOL [Concomitant]
     Active Substance: POLYETHYLENE GLYCOLS
     Dosage: UNK, QD
     Dates: start: 20150701, end: 20150918

REACTIONS (7)
  - Arthralgia [Unknown]
  - Inflammation [Unknown]
  - Febrile neutropenia [Unknown]
  - Decreased appetite [Unknown]
  - Axillary vein thrombosis [Unknown]
  - Wound infection [Unknown]
  - Dysphonia [Unknown]

NARRATIVE: CASE EVENT DATE: 20150625
